FAERS Safety Report 15468628 (Version 1)
Quarter: 2018Q4

REPORT INFORMATION
  Report Type: Spontaneous
  Country: US (occurrence: US)
  Receive Date: 20181005
  Receipt Date: 20181005
  Transmission Date: 20190204
  Serious: No
  Sender: FDA-Public Use
  Company Number: US-SA-2018SA273715

PATIENT

DRUGS (2)
  1. ELITEK [Suspect]
     Active Substance: RASBURICASE
     Indication: GLUCOSE-6-PHOSPHATE DEHYDROGENASE DEFICIENCY
     Dosage: UNK
     Dates: start: 2005
  2. ELITEK [Suspect]
     Active Substance: RASBURICASE
     Indication: METHAEMOGLOBINAEMIA

REACTIONS (1)
  - Product use in unapproved indication [Unknown]
